FAERS Safety Report 4394794-1 (Version None)
Quarter: 2004Q3

REPORT INFORMATION
  Report Type: 
  Country: None (occurrence: None)
  Receive Date: 20040707
  Receipt Date: 20040625
  Transmission Date: 20050211
  Serious: Yes (Hospitalization, Other)
  Sender: FDA-Public Use
  Company Number: HQWYE717428JUN04

PATIENT
  Age: 45 Year
  Sex: Female

DRUGS (2)
  1. EFFEXOR XR [Suspect]
     Indication: DEPRESSION
     Dosage: 3 CAPSULE 1X PER 1 DAY, ORAL
     Route: 048
     Dates: start: 20030601, end: 20040601
  2. TRILEPTAL [Concomitant]

REACTIONS (1)
  - OPERATIVE HAEMORRHAGE [None]
